FAERS Safety Report 15725613 (Version 2)
Quarter: 2019Q1

REPORT INFORMATION
  Report Type: Report from Study
  Country: None (occurrence: US)
  Receive Date: 20181215
  Receipt Date: 20190114
  Transmission Date: 20190417
  Serious: Yes (Hospitalization, Other)
  Sender: FDA-Public Use
  Company Number: US-ABBVIE-18K-163-2591012-00

PATIENT
  Age: 59 Year
  Sex: Female

DRUGS (1)
  1. HUMIRA [Suspect]
     Active Substance: ADALIMUMAB
     Indication: UVEITIS
     Route: 058
     Dates: end: 2018

REACTIONS (3)
  - Drug ineffective [Unknown]
  - Corneal transplant [Not Recovered/Not Resolved]
  - Ocular procedural complication [Not Recovered/Not Resolved]

NARRATIVE: CASE EVENT DATE: 201812
